FAERS Safety Report 17642560 (Version 1)
Quarter: 2020Q2

REPORT INFORMATION
  Report Type: Spontaneous
  Country: US (occurrence: US)
  Receive Date: 20200408
  Receipt Date: 20200408
  Transmission Date: 20200713
  Serious: No
  Sender: FDA-Public Use
  Company Number: US-ALLERGAN-1938344US

PATIENT
  Age: 50 Year
  Sex: Female

DRUGS (3)
  1. LILETTA [Suspect]
     Active Substance: LEVONORGESTREL
     Indication: UTERINE HAEMORRHAGE
     Dosage: 52 MG, SINGLE
     Route: 015
     Dates: start: 20190812, end: 20190812
  2. MEGACE [Concomitant]
     Active Substance: MEGESTROL ACETATE
  3. ESTRACE [Concomitant]
     Active Substance: ESTRADIOL

REACTIONS (2)
  - Off label use [Unknown]
  - Device malfunction [Unknown]

NARRATIVE: CASE EVENT DATE: 20190812
